FAERS Safety Report 18723830 (Version 1)
Quarter: 2021Q1

REPORT INFORMATION
  Report Type: Spontaneous
  Country: US (occurrence: US)
  Receive Date: 20210107
  Receipt Date: 20210107
  Transmission Date: 20210419
  Serious: No
  Sender: FDA-Public Use
  Company Number: None

PATIENT
  Age: 63 Year
  Sex: Male

DRUGS (2)
  1. METFORMIN (METFORMIN HCL 850MG TAB) [Suspect]
     Active Substance: METFORMIN HYDROCHLORIDE
     Indication: DIABETES MELLITUS
     Route: 048
     Dates: end: 20200928
  2. EMPAGLIFLOZIN (EMPAGLIFLOZIN 10MG TAB) [Suspect]
     Active Substance: EMPAGLIFLOZIN
     Indication: DIABETES MELLITUS
     Route: 048
     Dates: start: 20190916, end: 20201001

REACTIONS (12)
  - Nausea [None]
  - Decreased appetite [None]
  - Metabolic acidosis [None]
  - Lactic acidosis [None]
  - Acute kidney injury [None]
  - Abdominal pain upper [None]
  - Pyrexia [None]
  - Chills [None]
  - Fatigue [None]
  - Vomiting [None]
  - Diabetic ketoacidosis [None]
  - Hypophagia [None]

NARRATIVE: CASE EVENT DATE: 20201022
